FAERS Safety Report 25951268 (Version 1)
Quarter: 2025Q4

REPORT INFORMATION
  Report Type: Spontaneous
  Country: EU (occurrence: EU)
  Receive Date: 20251023
  Receipt Date: 20251023
  Transmission Date: 20260117
  Serious: Yes (Death, Other)
  Sender: ROCHE
  Company Number: EU-ADIENNEP-2024AD000045

PATIENT
  Sex: Male

DRUGS (14)
  1. MYCOPHENOLATE MOFETIL [Suspect]
     Active Substance: MYCOPHENOLATE MOFETIL
     Indication: Prophylaxis against graft versus host disease
     Route: 065
     Dates: start: 2013
  2. THIOTEPA [Suspect]
     Active Substance: THIOTEPA
     Indication: Allogenic stem cell transplantation
     Route: 065
     Dates: start: 2013, end: 2013
  3. CYCLOPHOSPHAMIDE [Suspect]
     Active Substance: CYCLOPHOSPHAMIDE
     Indication: Prophylaxis against graft versus host disease
     Route: 065
     Dates: start: 201212, end: 201302
  4. CYCLOPHOSPHAMIDE [Suspect]
     Active Substance: CYCLOPHOSPHAMIDE
     Route: 065
     Dates: start: 2013
  5. CYCLOSPORINE [Suspect]
     Active Substance: CYCLOSPORINE
     Indication: Prophylaxis against graft versus host disease
     Route: 065
     Dates: start: 2013
  6. BUSULFAN [Suspect]
     Active Substance: BUSULFAN
     Indication: Allogenic stem cell transplantation
     Route: 065
     Dates: start: 2013, end: 2013
  7. FLUDARABINE [Suspect]
     Active Substance: FLUDARABINE PHOSPHATE
     Indication: Allogenic stem cell transplantation
     Route: 065
     Dates: start: 2013, end: 2013
  8. DAPTOMYCIN [Concomitant]
     Active Substance: DAPTOMYCIN
     Indication: Pseudomonas infection
     Dates: start: 20130612, end: 20130614
  9. RIFAMPIN [Concomitant]
     Active Substance: RIFAMPIN
     Indication: Pseudomonas infection
     Dates: start: 20130612, end: 20130614
  10. TIGECYCLINE [Concomitant]
     Active Substance: TIGECYCLINE
     Indication: Pseudomonas infection
     Dates: start: 20130612, end: 20130614
  11. COLISTIMETHATE SODIUM [Concomitant]
     Active Substance: COLISTIMETHATE SODIUM
     Indication: Klebsiella infection
     Dosage: 9 MIU
     Dates: start: 20130612, end: 20130614
  12. MEROPENEM [Concomitant]
     Active Substance: MEROPENEM
     Indication: Febrile neutropenia
  13. AMIKACIN SULFATE [Concomitant]
     Active Substance: AMIKACIN SULFATE
     Indication: Febrile neutropenia
     Dates: start: 20130530, end: 20130614
  14. PIPERACILLIN SODIUM\TAZOBACTAM SODIUM [Concomitant]
     Active Substance: PIPERACILLIN SODIUM\TAZOBACTAM SODIUM
     Indication: Febrile neutropenia

REACTIONS (11)
  - Pyrexia [Unknown]
  - Enterococcal infection [Unknown]
  - Bacterial infection [Unknown]
  - Neutropenia [Unknown]
  - Anal abscess [Fatal]
  - Septic shock [Fatal]
  - Klebsiella infection [Fatal]
  - Pseudomonas infection [Unknown]
  - Bone marrow failure [Fatal]
  - Pseudomonal sepsis [Fatal]
  - Febrile neutropenia [Fatal]
